FAERS Safety Report 21302255 (Version 1)
Quarter: 2022Q3

REPORT INFORMATION
  Report Type: Spontaneous
  Country: None (occurrence: US)
  Receive Date: 20220907
  Receipt Date: 20220907
  Transmission Date: 20221027
  Serious: No
  Sender: FDA-Public Use
  Company Number: US-Appco Pharma LLC-2132617

PATIENT
  Age: 54 Year
  Sex: Female

DRUGS (4)
  1. RAMELTEON [Suspect]
     Active Substance: RAMELTEON
     Indication: Insomnia
     Route: 048
     Dates: start: 20220819
  2. Olly Sleep Aid [Concomitant]
     Route: 065
  3. Melatonin 6 mg [Concomitant]
     Route: 065
  4. FLAGYL [Concomitant]
     Active Substance: METRONIDAZOLE\METRONIDAZOLE HYDROCHLORIDE
     Route: 065

REACTIONS (5)
  - Insomnia [Unknown]
  - Therapeutic product effect delayed [Unknown]
  - Nervousness [Unknown]
  - Feeling jittery [Unknown]
  - Drug ineffective [Unknown]

NARRATIVE: CASE EVENT DATE: 20220822
